FAERS Safety Report 15944302 (Version 1)
Quarter: 2019Q1

REPORT INFORMATION
  Report Type: Spontaneous
  Country: US (occurrence: US)
  Receive Date: 20190118
  Receipt Date: 20190118
  Transmission Date: 20190417
  Serious: Yes (Hospitalization)
  Sender: FDA-Public Use
  Company Number: None

PATIENT
  Sex: Female
  Weight: 55 kg

DRUGS (1)
  1. YESCARTA [Suspect]
     Active Substance: AXICABTAGENE CILOLEUCEL
     Indication: DIFFUSE LARGE B-CELL LYMPHOMA
     Dosage: ?          OTHER DOSE:2X10^6 PER KG MAX ;?
     Route: 042
     Dates: start: 20181210

REACTIONS (11)
  - Neurotoxicity [None]
  - Hallucination, visual [None]
  - Somnolence [None]
  - Product dose omission [None]
  - Cytokine release syndrome [None]
  - Loss of consciousness [None]
  - Double hit lymphoma [None]
  - Toxic encephalopathy [None]
  - Subdural hygroma [None]
  - Confusional state [None]
  - Mental status changes [None]
